FAERS Safety Report 7016102-X (Version None)
Quarter: 2010Q3

REPORT INFORMATION
  Report Type: 
  Country: None (occurrence: None)
  Receive Date: 20100927
  Receipt Date: 20100914
  Transmission Date: 20110219
  Serious: Yes (Death)
  Sender: FDA-Public Use
  Company Number: TW-WATSON-2010-12566

PATIENT
  Age: 69 Year
  Sex: Female

DRUGS (4)
  1. FLUOROURACIL [Suspect]
     Indication: COLON CANCER
     Dosage: 400 MG/MM BOLUS DAY 1
     Route: 042
     Dates: start: 20090528, end: 20090826
  2. FLUOROURACIL [Suspect]
     Dosage: 600 MG/MM 22 HOUR INFUSION DAYS 1, 2
     Route: 042
     Dates: start: 20090528
  3. OXALIPLATIN [Suspect]
     Indication: COLON CANCER
     Dosage: 85 MG/MM DAY 1 EVERY TWO WEEKS
     Route: 042
     Dates: start: 20090528, end: 20090826
  4. CETUXIMAB [Suspect]
     Indication: COLON CANCER
     Dosage: INFUSION FOR TWO HOURS ON DAY 1
     Route: 042
     Dates: start: 20090528, end: 20090826

REACTIONS (2)
  - ACUTE INTERSTITIAL PNEUMONITIS [None]
  - RESPIRATORY FAILURE [None]
